FAERS Safety Report 19774057 (Version 2)
Quarter: 2021Q3

REPORT INFORMATION
  Report Type: Report from Study
  Country: CA (occurrence: CA)
  Receive Date: 20210831
  Receipt Date: 20210907
  Transmission Date: 20211014
  Serious: Yes (Hospitalization, Other)
  Sender: FDA-Public Use
  Company Number: CA-SHIRE-CA201509156

PATIENT
  Age: 16 Year
  Sex: Male

DRUGS (3)
  1. IDURSULFASE [Suspect]
     Active Substance: IDURSULFASE
     Dosage: 0.54 MILLIGRAM/KILOGRAM, 1/WEEK
     Route: 042
     Dates: start: 20180122
  2. IDURSULFASE [Suspect]
     Active Substance: IDURSULFASE
     Indication: MUCOPOLYSACCHARIDOSIS II
     Dosage: 0.5 MILLIGRAM/KILOGRAM, 1/WEEK
     Route: 041
     Dates: start: 20080403
  3. IDURSULFASE [Suspect]
     Active Substance: IDURSULFASE
     Dosage: 0.54 MILLIGRAM/KILOGRAM, 1/WEEK
     Route: 041
     Dates: start: 20101007

REACTIONS (1)
  - Bacteraemia [Recovered/Resolved]

NARRATIVE: CASE EVENT DATE: 20141114
